FAERS Safety Report 11618755 (Version 2)
Quarter: 2015Q4

REPORT INFORMATION
  Report Type: Spontaneous
  Country: US (occurrence: US)
  Receive Date: 20151012
  Receipt Date: 20151204
  Transmission Date: 20160304
  Serious: No
  Sender: FDA-Public Use
  Company Number: US-LEO PHARMA-237445

PATIENT
  Age: 56 Year
  Sex: Female

DRUGS (2)
  1. PICATO [Suspect]
     Active Substance: INGENOL MEBUTATE
     Indication: PRECANCEROUS SKIN LESION
     Route: 061
     Dates: start: 20150930, end: 20151002
  2. PICATO [Suspect]
     Active Substance: INGENOL MEBUTATE
     Indication: ACTINIC CHEILITIS

REACTIONS (8)
  - Application site vesicles [Recovered/Resolved]
  - Application site discomfort [Recovered/Resolved]
  - Application site erythema [Not Recovered/Not Resolved]
  - Application site exfoliation [Recovered/Resolved]
  - Drug administered at inappropriate site [Unknown]
  - Product use issue [Unknown]
  - Application site warmth [Recovered/Resolved]
  - Application site scab [Recovered/Resolved]

NARRATIVE: CASE EVENT DATE: 20150930
